FAERS Safety Report 23355478 (Version 1)
Quarter: 2024Q1

REPORT INFORMATION
  Report Type: Spontaneous
  Country: US (occurrence: US)
  Receive Date: 20240102
  Receipt Date: 20240102
  Transmission Date: 20240410
  Serious: No
  Sender: FDA-Public Use
  Company Number: US-VIIV HEALTHCARE LIMITED-US2023178649

PATIENT
  Age: 33 Year
  Sex: Male

DRUGS (2)
  1. RILPIVIRINE [Suspect]
     Active Substance: RILPIVIRINE
     Indication: HIV infection
     Dosage: UNK,CABENUVA SINGLE-DOSE VIAL OF 600-MG/900-MG KIT
     Route: 065
     Dates: start: 20231019, end: 20231019
  2. CABOTEGRAVIR [Suspect]
     Active Substance: CABOTEGRAVIR
     Indication: HIV infection
     Dosage: UNK,CABENUVA SINGLE-DOSE VIAL OF 600-MG/900-MG KIT
     Route: 065
     Dates: start: 20231019, end: 20231019

REACTIONS (1)
  - Product dose omission issue [Unknown]

NARRATIVE: CASE EVENT DATE: 20231219
